FAERS Safety Report 6772732-1 (Version None)
Quarter: 2010Q2

REPORT INFORMATION
  Report Type: 
  Country: None (occurrence: None)
  Receive Date: 20100616
  Receipt Date: 20100607
  Transmission Date: 20101027
  Serious: Yes (Hospitalization)
  Sender: FDA-Public Use
  Company Number: JP-PFIZER INC-2010072591

PATIENT
  Age: 24 Year
  Sex: Female

DRUGS (2)
  1. METHYLPREDNISOLONE SODIUM SUCCINATE [Suspect]
     Indication: LUPUS NEPHRITIS
     Dosage: 1 G, 1X/DAY
     Route: 042
  2. PREDNISOLONE [Suspect]
     Route: 048

REACTIONS (2)
  - ATRIAL THROMBOSIS [None]
  - VENA CAVA THROMBOSIS [None]
